FAERS Safety Report 5093760-0 (Version None)
Quarter: 2006Q3

REPORT INFORMATION
  Report Type: 
  Country: None (occurrence: None)
  Receive Date: 20060831
  Receipt Date: 20060822
  Transmission Date: 20061208
  Serious: Yes (Other)
  Sender: FDA-Public Use
  Company Number: BR-JNJFOC-20060805745

PATIENT
  Sex: Male
  Weight: 62 kg

DRUGS (1)
  1. RISPERDAL [Suspect]
     Indication: PSYCHOMOTOR HYPERACTIVITY
     Route: 048

REACTIONS (2)
  - DIABETES MELLITUS INSULIN-DEPENDENT [None]
  - MUSCLE RIGIDITY [None]
